FAERS Safety Report 6100671-8 (Version None)
Quarter: 2009Q1

REPORT INFORMATION
  Report Type: 
  Country: None (occurrence: None)
  Receive Date: 20090303
  Receipt Date: 20090227
  Transmission Date: 20090719
  Serious: Yes (Death)
  Sender: FDA-Public Use
  Company Number: PHHY2009RU01775

PATIENT
  Sex: Male

DRUGS (3)
  1. MYFORTIC [Suspect]
     Dosage: UNK
     Dates: start: 20080608, end: 20081211
  2. NEORAL [Suspect]
  3. PREDNISOLONE [Concomitant]

REACTIONS (2)
  - COLITIS [None]
  - CONDITION AGGRAVATED [None]
